FAERS Safety Report 17568646 (Version 1)
Quarter: 2020Q1

REPORT INFORMATION
  Report Type: Spontaneous
  Country: CO (occurrence: CO)
  Receive Date: 20200320
  Receipt Date: 20200320
  Transmission Date: 20200409
  Serious: Yes (Other)
  Sender: FDA-Public Use
  Company Number: CO-BAXTER-2020BAX005868

PATIENT

DRUGS (1)
  1. CLORURO DE SODIO AL 0.9%  USP [Suspect]
     Active Substance: SODIUM CHLORIDE
     Indication: PRODUCT USED FOR UNKNOWN INDICATION
     Route: 065

REACTIONS (1)
  - Burkholderia cepacia complex infection [Unknown]

NARRATIVE: CASE EVENT DATE: 2020
